FAERS Safety Report 20098413 (Version 2)
Quarter: 2021Q4

REPORT INFORMATION
  Report Type: Spontaneous
  Country: NO (occurrence: NO)
  Receive Date: 20211122
  Receipt Date: 20211201
  Transmission Date: 20220303
  Serious: Yes (Other)
  Sender: FDA-Public Use
  Company Number: NO-GE HEALTHCARE-2021CSU005693

PATIENT

DRUGS (5)
  1. OMNIPAQUE [Suspect]
     Active Substance: IOHEXOL
     Indication: Computerised tomogram aorta
     Dosage: 70 ML, SINGLE
     Route: 042
     Dates: start: 20211014, end: 20211014
  2. OMNIPAQUE [Suspect]
     Active Substance: IOHEXOL
     Indication: Aortic aneurysm
  3. ASPIRIN\MAGNESIUM OXIDE [Concomitant]
     Active Substance: ASPIRIN\MAGNESIUM OXIDE
     Dosage: 75 MG, QD
  4. LIPITOR [Concomitant]
     Active Substance: ATORVASTATIN CALCIUM
     Dosage: 10 MG, QD
  5. ATACAND [Concomitant]
     Active Substance: CANDESARTAN CILEXETIL
     Dosage: 16 MG, QD

REACTIONS (7)
  - Mouth haemorrhage [Recovered/Resolved]
  - Anal haemorrhage [Recovered/Resolved]
  - Lip haemorrhage [Recovered/Resolved]
  - Oral mucosal exfoliation [Recovered/Resolved]
  - Gingival discomfort [Recovered/Resolved]
  - Musculoskeletal stiffness [Recovering/Resolving]
  - Lip swelling [Recovered/Resolved]

NARRATIVE: CASE EVENT DATE: 20211023
